FAERS Safety Report 22207544 (Version 12)
Quarter: 2025Q4

REPORT INFORMATION
  Report Type: Spontaneous
  Country: US (occurrence: US)
  Receive Date: 20230413
  Receipt Date: 20251029
  Transmission Date: 20260117
  Serious: No
  Sender: DAIICHI
  Company Number: US-DSJP-DSU-2023-113955AA

PATIENT
  Sex: Male

DRUGS (2)
  1. TURALIO [Suspect]
     Active Substance: PEXIDARTINIB HYDROCHLORIDE
     Indication: Connective tissue neoplasm
     Dosage: 250 MG (125MG, 2 CAPSULES), BID
     Route: 048
     Dates: start: 20230403
  2. TURALIO [Suspect]
     Active Substance: PEXIDARTINIB HYDROCHLORIDE
     Indication: Soft tissue neoplasm
     Dosage: 250 MG (125MG, 2 CAPSULES), BID
     Route: 048

REACTIONS (16)
  - Paranoia [Not Recovered/Not Resolved]
  - Joint instability [Not Recovered/Not Resolved]
  - Joint noise [Not Recovered/Not Resolved]
  - Persecutory delusion [Not Recovered/Not Resolved]
  - Pruritus [Recovered/Resolved]
  - Fatigue [Recovered/Resolved]
  - Abdominal pain [Recovered/Resolved]
  - Fatigue [Recovered/Resolved]
  - Fatigue [Not Recovered/Not Resolved]
  - Hypertension [Recovered/Resolved]
  - Memory impairment [Not Recovered/Not Resolved]
  - Sunburn [Not Recovered/Not Resolved]
  - Lacrimation increased [Not Recovered/Not Resolved]
  - Fatigue [Not Recovered/Not Resolved]
  - Photophobia [Not Recovered/Not Resolved]
  - Product dose omission in error [Recovered/Resolved]

NARRATIVE: CASE EVENT DATE: 20230101
